FAERS Safety Report 22654766 (Version 1)
Quarter: 2023Q2

REPORT INFORMATION
  Report Type: Spontaneous
  Country: TR (occurrence: TR)
  Receive Date: 20230629
  Receipt Date: 20230629
  Transmission Date: 20230721
  Serious: Yes (Hospitalization)
  Sender: FDA-Public Use
  Company Number: TR-BAYER-2023A087406

PATIENT
  Age: 20 Month
  Sex: Female

DRUGS (4)
  1. GLUCOBAY [Suspect]
     Active Substance: ACARBOSE
     Indication: Dumping syndrome
     Dosage: 50 MG, QD
     Route: 048
     Dates: start: 20230219
  2. GLUCOBAY [Suspect]
     Active Substance: ACARBOSE
     Indication: Dumping syndrome
     Dosage: 50 MG, QD
     Route: 048
     Dates: end: 20230620
  3. PROPRANOLOL HYDROCHLORIDE [Concomitant]
     Active Substance: PROPRANOLOL HYDROCHLORIDE
     Indication: Tachycardia
  4. MAGNESIUM ALGINATE\SODIUM ALGINATE [Suspect]
     Active Substance: MAGNESIUM ALGINATE\SODIUM ALGINATE
     Indication: Tachycardia

REACTIONS (5)
  - Rhinovirus infection [None]
  - Diarrhoea [None]
  - Off label use [None]
  - Off label use [None]
  - Wrong technique in product usage process [None]

NARRATIVE: CASE EVENT DATE: 20230101
